FAERS Safety Report 14713266 (Version 1)
Quarter: 2018Q1

REPORT INFORMATION
  Report Type: Spontaneous
  Country: US (occurrence: US)
  Receive Date: 20180330
  Receipt Date: 20180330
  Transmission Date: 20180509
  Serious: No
  Sender: FDA-Public Use
  Company Number: None

PATIENT
  Age: 51 Year
  Sex: Female

DRUGS (1)
  1. NEULASTA [Suspect]
     Active Substance: PEGFILGRASTIM
     Indication: NEUTROPENIA
     Route: 058
     Dates: start: 20180223, end: 20180223

REACTIONS (5)
  - Headache [None]
  - Bone pain [None]
  - Chest pain [None]
  - Epistaxis [None]
  - Dizziness [None]

NARRATIVE: CASE EVENT DATE: 20180223
